FAERS Safety Report 12701562 (Version 1)
Quarter: 2016Q3

REPORT INFORMATION
  Report Type: Spontaneous
  Country: KR (occurrence: KR)
  Receive Date: 20160831
  Receipt Date: 20160831
  Transmission Date: 20161109
  Serious: Yes (Other)
  Sender: FDA-Public Use
  Company Number: KR-AMGEN-KORSP2016114059

PATIENT
  Age: 34 Year
  Sex: Female

DRUGS (4)
  1. G-LASTA [Suspect]
     Active Substance: PEGFILGRASTIM
     Dosage: 6 MG, UNK
     Route: 065
     Dates: start: 20141019, end: 20141019
  2. G-LASTA [Suspect]
     Active Substance: PEGFILGRASTIM
     Indication: PRODUCT USED FOR UNKNOWN INDICATION
     Dosage: 6 MG, UNK
     Route: 065
     Dates: start: 20140905, end: 20140905
  3. G-LASTA [Suspect]
     Active Substance: PEGFILGRASTIM
     Dosage: 6 MG, UNK
     Route: 065
     Dates: start: 20140925, end: 20140925
  4. G-LASTA [Suspect]
     Active Substance: PEGFILGRASTIM
     Dosage: 6 MG, UNK
     Route: 065
     Dates: start: 20141122, end: 20141122

REACTIONS (10)
  - Xerophthalmia [Unknown]
  - Pruritus [Unknown]
  - Insomnia [Unknown]
  - Herpes zoster [Unknown]
  - Furuncle [Unknown]
  - Anaemia [Unknown]
  - Neutropenia [Unknown]
  - Conjunctivitis bacterial [Unknown]
  - Constipation [Unknown]
  - Cervicitis [Unknown]

NARRATIVE: CASE EVENT DATE: 20140911
